APPROVED DRUG PRODUCT: FOSAPREPITANT DIMEGLUMINE
Active Ingredient: FOSAPREPITANT DIMEGLUMINE
Strength: EQ 150MG BASE/VIAL
Dosage Form/Route: POWDER;INTRAVENOUS
Application: A206197 | Product #001 | TE Code: AP
Applicant: FRESENIUS KABI USA LLC
Approved: Jun 9, 2016 | RLD: No | RS: No | Type: RX